FAERS Safety Report 6295740-6 (Version None)
Quarter: 2009Q3

REPORT INFORMATION
  Report Type: 
  Country: None (occurrence: None)
  Receive Date: 20090803
  Receipt Date: 20090803
  Transmission Date: 20100115
  Serious: Yes (Other)
  Sender: FDA-Public Use
  Company Number: None

PATIENT
  Sex: Male
  Weight: 86.1834 kg

DRUGS (1)
  1. BUPROPION HYDROCHLORIDE [Suspect]
     Indication: SMOKING CESSATION THERAPY
     Dosage: 1 TABLET 2XD A DAY
     Dates: start: 20090526

REACTIONS (2)
  - DISORIENTATION [None]
  - FATIGUE [None]
